FAERS Safety Report 23088288 (Version 1)
Quarter: 2023Q4

REPORT INFORMATION
  Report Type: Spontaneous
  Country: FR (occurrence: FR)
  Receive Date: 20231020
  Receipt Date: 20231020
  Transmission Date: 20240110
  Serious: Yes (Hospitalization, Other)
  Sender: FDA-Public Use
  Company Number: FR-PHOENIX-2023038880

PATIENT
  Age: 75 Year
  Sex: Female
  Weight: 92 kg

DRUGS (8)
  1. ZOMETA [Suspect]
     Active Substance: ZOLEDRONIC ACID
     Indication: Plasma cell myeloma
     Dosage: UNK
     Route: 065
     Dates: start: 20170620, end: 20190707
  2. LENALIDOMIDE [Suspect]
     Active Substance: LENALIDOMIDE
     Indication: Plasma cell myeloma
     Dosage: UNK (25 MG/J, 21 JOURS/MOIS, 525.0 MG, 1 MONTH)
     Route: 065
     Dates: start: 20210219
  3. DEXAMETHASONE ACETATE [Suspect]
     Active Substance: DEXAMETHASONE ACETATE
     Indication: Plasma cell myeloma
     Dosage: UNK (40 MG/J X4/MOIS, 160.0MG, 1 MONTH)
     Route: 065
     Dates: start: 20210219
  4. MELPHALAN [Suspect]
     Active Substance: MELPHALAN
     Indication: Plasma cell myeloma
     Dosage: UNK (20,75 MG/J X4/MOIS } 1 CYCLE TOUTES LES 5 SEMAINES, 83.0MG, 5 WEEK)
     Route: 065
     Dates: start: 20170620, end: 20180523
  5. PREDNISONE [Suspect]
     Active Substance: PREDNISONE
     Indication: Plasma cell myeloma
     Dosage: UNK (165 MG/J X4/MOIS } 1 CYCLE TOUTES LES 5 SEMAINES, 660.0MG, 5 WEEK)
     Route: 065
     Dates: start: 20170620, end: 20180523
  6. DARZALEX [Suspect]
     Active Substance: DARATUMUMAB
     Indication: Plasma cell myeloma
     Dosage: 16 MG/KG, QMO
     Route: 065
     Dates: start: 20210219
  7. BORTEZOMIB [Suspect]
     Active Substance: BORTEZOMIB
     Indication: Plasma cell myeloma
     Dosage: UNK (250 MG/J X3/MOIS } 1 CYCLE TOUTES LES 5 SEMAINES, 750.0MG, 5 WEEK)
     Route: 065
     Dates: start: 20170620, end: 20180523
  8. VALACYCLOVIR HYDROCHLORIDE [Concomitant]
     Active Substance: VALACYCLOVIR HYDROCHLORIDE
     Indication: Product used for unknown indication
     Dosage: UNK
     Route: 065

REACTIONS (1)
  - Osteonecrosis of jaw [Not Recovered/Not Resolved]

NARRATIVE: CASE EVENT DATE: 20210901
